FAERS Safety Report 24080461 (Version 1)
Quarter: 2024Q3

REPORT INFORMATION
  Report Type: Spontaneous
  Country: PL (occurrence: None)
  Receive Date: 20240711
  Receipt Date: 20240711
  Transmission Date: 20241016
  Serious: Yes (Hospitalization)
  Sender: ASTRAZENECA
  Company Number: 2024A153710

PATIENT
  Age: 28 Year
  Sex: Male

DRUGS (6)
  1. BUDESONIDE [Suspect]
     Active Substance: BUDESONIDE
     Indication: Pyrexia
     Route: 055
     Dates: start: 2023, end: 2023
  2. BUDESONIDE [Suspect]
     Active Substance: BUDESONIDE
     Indication: Asthenia
     Route: 055
     Dates: start: 2023, end: 2023
  3. BUDESONIDE [Suspect]
     Active Substance: BUDESONIDE
     Indication: Cough
     Route: 055
     Dates: start: 2023, end: 2023
  4. NAPROXEN [Suspect]
     Active Substance: NAPROXEN
     Indication: Asthenia
     Dates: start: 2023, end: 2023
  5. NAPROXEN [Suspect]
     Active Substance: NAPROXEN
     Indication: Pyrexia
     Dates: start: 2023, end: 2023
  6. NAPROXEN [Suspect]
     Active Substance: NAPROXEN
     Indication: Cough
     Dates: start: 2023, end: 2023

REACTIONS (5)
  - Lower respiratory tract infection [Unknown]
  - Tachycardia [Unknown]
  - General physical health deterioration [Unknown]
  - Product use in unapproved indication [Unknown]
  - Drug ineffective for unapproved indication [Unknown]

NARRATIVE: CASE EVENT DATE: 20230101
